FAERS Safety Report 25035299 (Version 1)
Quarter: 2025Q1

REPORT INFORMATION
  Report Type: Spontaneous
  Country: US (occurrence: US)
  Receive Date: 20250304
  Receipt Date: 20250304
  Transmission Date: 20250409
  Serious: No
  Sender: PAREXEL
  Company Number: US-STEMLINE THERAPEUTICS B.V.-2025-STML-US000497

PATIENT

DRUGS (1)
  1. ORSERDU [Suspect]
     Active Substance: ELACESTRANT
     Indication: Breast cancer
     Dosage: 345 MG, DAILY
     Route: 048
     Dates: start: 20250114, end: 20250210

REACTIONS (1)
  - Product use complaint [Unknown]
